FAERS Safety Report 8341846 (Version 2)
Quarter: 2013Q2

REPORT INFORMATION
  Report Type: Spontaneous
  Country: US (occurrence: None)
  Receive Date: 20111202
  Receipt Date: 20121203
  Transmission Date: 20140414
  Serious: Yes (Hospitalization, Other)
  Sender: FDA-Public Use
  Company Number: 2011SP030646

PATIENT
  Age: 48 Year
  Sex: Female
  Weight: 64.9 kg

DRUGS (2)
  1. NUVARING (ETONOGESTREL (+) ETHINYL ESTRADIOL) VAGINAL RING [Suspect]
     Indication: CONTRACEPTION
     Dates: start: 200808, end: 200909
  2. COUMADIN (WARFARIN SODIUM) [Suspect]
     Indication: COAGULOPATHY
     Dates: start: 200809

REACTIONS (12)
  - PULMONARY EMBOLISM [None]
  - Anxiety [None]
  - Skin disorder [None]
  - Atrial flutter [None]
  - Ovarian cyst [None]
  - Pneumonia [None]
  - Groin pain [None]
  - Rash [None]
  - Pleural effusion [None]
  - Muscle strain [None]
  - Patellofemoral pain syndrome [None]
  - Joint effusion [None]
